FAERS Safety Report 13261170 (Version 1)
Quarter: 2017Q1

REPORT INFORMATION
  Report Type: Spontaneous
  Country: US (occurrence: US)
  Receive Date: 20170222
  Receipt Date: 20170222
  Transmission Date: 20170428
  Serious: Yes (Hospitalization)
  Sender: FDA-Public Use
  Company Number: US-SA-2017SA027789

PATIENT
  Age: 58 Year
  Sex: Female

DRUGS (2)
  1. LANTUS SOLOSTAR [Suspect]
     Active Substance: INSULIN GLARGINE
     Indication: TYPE 2 DIABETES MELLITUS
     Dosage: 15 UNITS IN THE MORNING AND 40 UNITS AT NIGHT.
     Route: 065
     Dates: start: 1995
  2. SOLOSTAR [Concomitant]
     Active Substance: DEVICE
     Dates: start: 1995

REACTIONS (4)
  - Thrombosis [Unknown]
  - Diabetic complication [Unknown]
  - Product use issue [Unknown]
  - Pneumonia [Unknown]
